FAERS Safety Report 23224215 (Version 1)
Quarter: 2023Q4

REPORT INFORMATION
  Report Type: Spontaneous
  Country: US (occurrence: US)
  Receive Date: 20231124
  Receipt Date: 20231124
  Transmission Date: 20240110
  Serious: No
  Sender: FDA-Public Use
  Company Number: US-LUPIN PHARMACEUTICALS INC.-2023-10496

PATIENT

DRUGS (2)
  1. DULOXETINE [Suspect]
     Active Substance: DULOXETINE
     Indication: Burning mouth syndrome
     Dosage: 20 MILLIGRAM, QD (ONE DAILY)
     Route: 065
  2. DULOXETINE [Suspect]
     Active Substance: DULOXETINE
     Dosage: 40 MILLIGRAM (DOCTOR INCREASED FROM 20 TO 40 MILLIGRAMS)
     Route: 065

REACTIONS (2)
  - Oral discomfort [Unknown]
  - Product use in unapproved indication [Unknown]
